FAERS Safety Report 8124856-4 (Version None)
Quarter: 2012Q1

REPORT INFORMATION
  Report Type: 
  Country: None (occurrence: None)
  Receive Date: 20120209
  Receipt Date: 20120203
  Transmission Date: 20120608
  Serious: Yes (Other)
  Sender: FDA-Public Use
  Company Number: ZA-JNJFOC-20120202040

PATIENT
  Sex: Male

DRUGS (3)
  1. VALPROATE SODIUM [Concomitant]
     Indication: PRODUCT USED FOR UNKNOWN INDICATION
     Route: 065
  2. CAMCOLIT [Concomitant]
     Route: 065
  3. RISPERIDONE [Suspect]
     Indication: BIPOLAR DISORDER
     Route: 048

REACTIONS (3)
  - FEELING ABNORMAL [None]
  - ABASIA [None]
  - TONGUE DISORDER [None]
